FAERS Safety Report 19399032 (Version 1)
Quarter: 2021Q2

REPORT INFORMATION
  Report Type: Spontaneous
  Country: US (occurrence: US)
  Receive Date: 20210610
  Receipt Date: 20210610
  Transmission Date: 20210717
  Serious: No
  Sender: FDA-Public Use
  Company Number: None

PATIENT
  Age: 57 Year
  Sex: Female
  Weight: 131.5 kg

DRUGS (22)
  1. ESCITALOPRAM [Concomitant]
     Active Substance: ESCITALOPRAM OXALATE
  2. CLOTRIMAZOLE. [Concomitant]
     Active Substance: CLOTRIMAZOLE
  3. KETOCONAZOLE. [Concomitant]
     Active Substance: KETOCONAZOLE
  4. TACROLIMUS. [Concomitant]
     Active Substance: TACROLIMUS
  5. IBUPROFEN. [Concomitant]
     Active Substance: IBUPROFEN
  6. MECLIZINE [Concomitant]
     Active Substance: MECLIZINE HYDROCHLORIDE
  7. LOPERAMIDE [Concomitant]
     Active Substance: LOPERAMIDE
  8. MULTIVITAMIN/VITAMIN D + C [Concomitant]
  9. CHOLESTYRAMINE. [Concomitant]
     Active Substance: CHOLESTYRAMINE
  10. MOMETASONE [Concomitant]
     Active Substance: MOMETASONE
  11. IBRANCE [Suspect]
     Active Substance: PALBOCICLIB
     Indication: BREAST CANCER
     Dosage: ?          OTHER FREQUENCY:DAILY X 21 DAYS;?
     Route: 048
     Dates: start: 20210414
  12. METHOCARBAMOL. [Concomitant]
     Active Substance: METHOCARBAMOL
  13. FLORASTOR [Concomitant]
     Active Substance: SACCHAROMYCES CEREVISIAE
  14. AMITRIPTYLINE [Concomitant]
     Active Substance: AMITRIPTYLINE
  15. NASOCART [Concomitant]
  16. HYDROCHLOROTHIAZIDE. [Concomitant]
     Active Substance: HYDROCHLOROTHIAZIDE
  17. DICYCLOMINE [Concomitant]
     Active Substance: DICYCLOMINE HYDROCHLORIDE
  18. NORCO [Concomitant]
     Active Substance: ACETAMINOPHEN\HYDROCODONE BITARTRATE
  19. VALSARTAN. [Concomitant]
     Active Substance: VALSARTAN
  20. NYSTATIN. [Concomitant]
     Active Substance: NYSTATIN
  21. DOXYCYCLINE. [Concomitant]
     Active Substance: DOXYCYCLINE
  22. XANAX [Concomitant]
     Active Substance: ALPRAZOLAM

REACTIONS (1)
  - Urinary tract infection [None]

NARRATIVE: CASE EVENT DATE: 20210610
